FAERS Safety Report 9357515 (Version 3)
Quarter: 2014Q1

REPORT INFORMATION
  Report Type: Spontaneous
  Country: JP (occurrence: JP)
  Receive Date: 20130620
  Receipt Date: 20140207
  Transmission Date: 20141002
  Serious: Yes (Death, Other)
  Sender: FDA-Public Use
  Company Number: JP-ROCHE-1236854

PATIENT
  Age: 72 Year
  Sex: Male
  Weight: 58 kg

DRUGS (2)
  1. XELODA [Suspect]
     Indication: COLON CANCER RECURRENT
     Route: 048
     Dates: start: 20130424
  2. AZUNOL [Concomitant]
     Route: 049

REACTIONS (3)
  - Drug-induced liver injury [Fatal]
  - Bone marrow failure [Unknown]
  - Renal disorder [Unknown]
